FAERS Safety Report 10570323 (Version 2)
Quarter: 2014Q4

REPORT INFORMATION
  Report Type: Spontaneous
  Country: JP (occurrence: None)
  Receive Date: 20141105
  Receipt Date: 20141204
  Transmission Date: 20150529
  Serious: Yes (Death)
  Sender: FDA-Public Use
  Company Number: 2009JP005862

PATIENT
  Age: 56 Year
  Sex: Male
  Weight: 71 kg

DRUGS (29)
  1. HUMALOG [Concomitant]
     Active Substance: INSULIN LISPRO
  2. THYRADIN S (LEVOTHYROXINE SODIUM) [Concomitant]
  3. PAXIL /00500401/ (PIROXICAM) [Concomitant]
  4. GLAKAY (MENATETRENONE) [Concomitant]
  5. BONALON (ALENDRONATE SODIUM) [Concomitant]
  6. HACHIMIJIOGAN (ACONITUM SPP. PROCESSED ROOT, ALISMA PLANTAGO-AQUATICA VAR. ORIENTALE TUBER, CINNAMOMUM CASSIA BARK, CORNUS OFFICINALIS FRUIT, DIOSCOREA SPP. RHIZOME, PAEONIA X SUFFRUTICOSA ROOT BARK, PORIA COCOS SCLEROTIUM, REHMANNIA GLUTINOSA ROOT) [Concomitant]
  7. TACROLIMUS CAPSULES (TACROLIMUS) CAPSULES [Suspect]
     Active Substance: TACROLIMUS
     Indication: LUPUS NEPHRITIS
     Dosage: ONCE DAILY
     Route: 048
     Dates: start: 20070426, end: 20070704
  8. EBRANTIL /00631801/ [Concomitant]
     Active Substance: URAPIDIL
  9. LANDSEN (CLONAZEPAM) [Concomitant]
  10. LOXONIN (LOXOPROFEN SODIUM) [Concomitant]
     Active Substance: LOXOPROFEN SODIUM
  11. KOSOSAN (CITRUS RETICULATA PEEL, CYPERUS ROTUNDUS RHIZOME, GLYCYRRHIZA SPP. ROOT, PERILLA FRUTESCENS VAR. CRISPA HERB, ZINGIBER OFFICINALE RHIZOME) [Concomitant]
  12. AMLODIN (AMLODIPINE BESILATE) [Concomitant]
  13. PARIET (RABEPRAZOLE SODIUM) [Concomitant]
  14. ALESION (EPINASTINE HYDROCHLORIDE) [Concomitant]
  15. ADALAT CR (NIFEDIPINE) [Concomitant]
  16. OPALMON (LIMAPROST ALFADEX) [Concomitant]
  17. BLOPRESS (CANDESARTAN CILEXETIL) [Concomitant]
     Active Substance: CANDESARTAN CILEXETIL
  18. ALLELOCK (OLOPATADINE HYDROCHLORIDE) [Concomitant]
  19. MYSLEE (ZOLPIDEM) [Concomitant]
  20. MEXITIL (MEXILETINE HYDROCHLORIDE) [Concomitant]
  21. DAIKENCHUTO (PANAX GINSENG ROOT, ZANTHOXYLUM PIPERITUM PERICARP, ZINGIBER OFFICINALE PROCESSED RHIZOME) [Concomitant]
  22. GOSHAJINKIGAN (ACHYRANTHES BIDENTATA ROOT, ACONITUM SPP. PROCESSED ROOT, ALISMA PLANTAGO-AQUATICA VAR. ORIENTALE TUBER, CINNAMOMUM CASSIA BARK, CORNUS OFFICINALIS FRUIT, DIOSCOREA SPP. RHIZOME, PAEONIA X SUFFRUTICOSA ROOT BARK, PLANTAGO ASIATICA SEED, PORIA COCOS SCLEROTIUM, REHMANNIA GLUTINOSA ROOT) [Concomitant]
     Active Substance: HERBALS
  23. LANIRAPID (METILDIGOXIN) [Concomitant]
  24. TERNELIN (TIZANIDINE HYDROCHLORIDE) [Concomitant]
  25. PREDONINE [Concomitant]
     Active Substance: PREDNISOLONE\PREDNISOLONE ACETATE\PREDNISOLONE SODIUM SUCCINATE
  26. ATARAX-P /00058403/ (HYDROXYZINE EMBONATE) [Concomitant]
  27. CONSTAN /00595201/ (ALPRAZOLAM) [Concomitant]
  28. CARDENALIN (DOXAZOSIN MESYLATE) [Concomitant]
  29. KLARICID /00984601/ (CLARITHROMYCIN) [Concomitant]

REACTIONS (3)
  - Loss of consciousness [None]
  - Gastric ulcer haemorrhage [None]
  - Myalgia [None]

NARRATIVE: CASE EVENT DATE: 20071207
